FAERS Safety Report 5381655-4 (Version None)
Quarter: 2007Q3

REPORT INFORMATION
  Report Type: 
  Country: None (occurrence: None)
  Receive Date: 20070709
  Receipt Date: 20070704
  Transmission Date: 20080115
  Serious: Yes (Death, Hospitalization)
  Sender: FDA-Public Use
  Company Number: PHBS2007JP11311

PATIENT
  Age: 55 Year
  Sex: Female

DRUGS (3)
  1. DICLOFENAC SODIUM [Suspect]
     Indication: CANCER PAIN
     Dosage: 25 MG, 3 TO 4 TIMES/DAY
     Route: 054
     Dates: start: 20040920
  2. MORPHINE [Concomitant]
     Indication: CANCER PAIN
     Dosage: 100 MG/DAY
     Route: 058
     Dates: start: 20040920
  3. DEXAMETHASONE [Concomitant]
     Indication: CANCER PAIN
     Dosage: 4 MG/DAY
     Route: 058
     Dates: start: 20040920

REACTIONS (10)
  - CEREBRAL INFARCTION [None]
  - CHOLECYSTITIS [None]
  - DELIRIUM [None]
  - DISSEMINATED INTRAVASCULAR COAGULATION [None]
  - INSOMNIA [None]
  - LARGE INTESTINE PERFORATION [None]
  - LARYNGITIS [None]
  - MALIGNANT NEOPLASM PROGRESSION [None]
  - PAIN [None]
  - SEPTIC SHOCK [None]
